FAERS Safety Report 18911493 (Version 4)
Quarter: 2021Q4

REPORT INFORMATION
  Report Type: Spontaneous
  Country: TR (occurrence: TR)
  Receive Date: 20210218
  Receipt Date: 20211109
  Transmission Date: 20220303
  Serious: Yes (Death, Life-Threatening, Hospitalization, Other)
  Sender: FDA-Public Use
  Company Number: TR-PFIZER INC-2021152569

PATIENT
  Age: 43 Year
  Sex: Female
  Weight: 78 kg

DRUGS (8)
  1. IRINOTECAN HYDROCHLORIDE [Suspect]
     Active Substance: IRINOTECAN HYDROCHLORIDE
     Indication: Adenocarcinoma pancreas
     Dosage: UNK, CYCLIC
     Route: 042
     Dates: start: 201902
  2. IRINOTECAN HYDROCHLORIDE [Suspect]
     Active Substance: IRINOTECAN HYDROCHLORIDE
     Dosage: UNK, CYCLIC
     Route: 042
     Dates: start: 201905
  3. FLUOROURACIL [Concomitant]
     Active Substance: FLUOROURACIL
     Indication: Adenocarcinoma pancreas
     Dosage: UNK, CYCLIC (TWO-WEEK CYCLES)
     Route: 042
     Dates: start: 201902
  4. FLUOROURACIL [Concomitant]
     Active Substance: FLUOROURACIL
     Dosage: UNK, CYCLIC (TWO-WEEK CYCLES)
     Route: 042
     Dates: start: 201905
  5. OXALIPLATIN [Concomitant]
     Active Substance: OXALIPLATIN
     Indication: Adenocarcinoma pancreas
     Dosage: UNK, CYCLIC (TWO-WEEK CYCLES)
     Route: 042
     Dates: start: 201902
  6. OXALIPLATIN [Concomitant]
     Active Substance: OXALIPLATIN
     Dosage: UNK, CYCLIC (TWO-WEEK CYCLES)
     Route: 042
     Dates: start: 201905
  7. CAPECITABINE [Concomitant]
     Active Substance: CAPECITABINE
     Indication: Adenocarcinoma pancreas
     Dosage: UNK, CYCLIC
     Dates: start: 201902
  8. CAPECITABINE [Concomitant]
     Active Substance: CAPECITABINE
     Dosage: UNK, CYCLIC
     Dates: start: 201905

REACTIONS (7)
  - Hepatic failure [Fatal]
  - Steatohepatitis [Fatal]
  - Toxicity to various agents [Fatal]
  - Septic shock [Fatal]
  - Nonalcoholic fatty liver disease [Fatal]
  - Multiple organ dysfunction syndrome [Fatal]
  - Hypotension [Not Recovered/Not Resolved]

NARRATIVE: CASE EVENT DATE: 20190501
